FAERS Safety Report 10851527 (Version 1)
Quarter: 2015Q1

REPORT INFORMATION
  Report Type: Spontaneous
  Country: US (occurrence: US)
  Receive Date: 20150222
  Receipt Date: 20150222
  Transmission Date: 20150721
  Serious: No
  Sender: FDA-Public Use
  Company Number: US-ALLERGAN-1413579US

PATIENT
  Age: 45 Year
  Sex: Female

DRUGS (4)
  1. BOTOX COSMETIC [Suspect]
     Active Substance: ONABOTULINUMTOXINA
     Indication: SKIN WRINKLING
     Dosage: 24 UNITS, SINGLE
     Route: 030
     Dates: start: 20140609, end: 20140609
  2. BOTOX COSMETIC [Suspect]
     Active Substance: ONABOTULINUMTOXINA
     Indication: SKIN WRINKLING
  3. BOTOX COSMETIC [Suspect]
     Active Substance: ONABOTULINUMTOXINA
     Indication: SKIN WRINKLING
  4. OMEPRAZOLE. [Concomitant]
     Active Substance: OMEPRAZOLE
     Dosage: UNK

REACTIONS (5)
  - Dizziness [Unknown]
  - Facial paresis [Not Recovered/Not Resolved]
  - Muscular weakness [Not Recovered/Not Resolved]
  - Dizziness [Not Recovered/Not Resolved]
  - Headache [Recovering/Resolving]

NARRATIVE: CASE EVENT DATE: 20140609
